FAERS Safety Report 8845703 (Version 5)
Quarter: 2013Q2

REPORT INFORMATION
  Report Type: Spontaneous
  Country: US (occurrence: US)
  Receive Date: 20121017
  Receipt Date: 20130523
  Transmission Date: 20140414
  Serious: Yes (Hospitalization, Other)
  Sender: FDA-Public Use
  Company Number: US-009507513-1202USA00855

PATIENT
  Sex: Female
  Weight: 70.3 kg

DRUGS (4)
  1. FOSAMAX [Suspect]
     Indication: PROPHYLAXIS
     Dosage: 70 MG,QW
     Route: 048
     Dates: start: 2000, end: 200804
  2. ALENDRONATE SODIUM [Suspect]
     Indication: PROPHYLAXIS
     Dosage: 70 MG, QW
     Route: 048
     Dates: start: 20080425, end: 20080425
  3. VITAMINS (UNSPECIFIED) [Concomitant]
     Dosage: UNK, QD
     Dates: start: 1990
  4. SYNTHROID [Concomitant]
     Indication: HYPOTHYROIDISM
     Dosage: UNK
     Dates: start: 1980

REACTIONS (30)
  - Femur fracture [Unknown]
  - Open reduction of fracture [Unknown]
  - Fracture nonunion [Unknown]
  - Open reduction of fracture [Unknown]
  - Hip arthroplasty [Unknown]
  - Hip arthroplasty [Unknown]
  - Hip arthroplasty [Unknown]
  - Cataract operation [Unknown]
  - Urinary tract infection [Unknown]
  - Haemorrhagic anaemia [Unknown]
  - Osteoarthritis [Unknown]
  - Medical device removal [Unknown]
  - Packed red blood cell transfusion [Unknown]
  - Transfusion [Unknown]
  - Knee arthroplasty [Unknown]
  - Osteoarthritis [Unknown]
  - Pain [Not Recovered/Not Resolved]
  - Blood cholesterol increased [Unknown]
  - Hypertension [Unknown]
  - Intervertebral disc protrusion [Unknown]
  - Fibula fracture [Unknown]
  - Nephrolithiasis [Unknown]
  - Hysterectomy [Unknown]
  - Back disorder [Unknown]
  - Lumbar spinal stenosis [Unknown]
  - Rotator cuff syndrome [Unknown]
  - Fall [Unknown]
  - Hyperlipidaemia [Unknown]
  - Atrial tachycardia [Recovered/Resolved]
  - Musculoskeletal discomfort [Unknown]
